FAERS Safety Report 4957370-5 (Version None)
Quarter: 2006Q1

REPORT INFORMATION
  Report Type: 
  Country: None (occurrence: None)
  Receive Date: 20060324
  Receipt Date: 20060316
  Transmission Date: 20060701
  Serious: Yes (Disabling)
  Sender: FDA-Public Use
  Company Number: HQWYE408620MAR06

PATIENT
  Age: 45 Year
  Sex: Female
  Weight: 77.18 kg

DRUGS (4)
  1. EFFEXOR XR [Suspect]
     Indication: ANXIETY
     Dosage: 150 MG 1X PER 1 DAY;SEE IMAGE
     Route: 048
     Dates: start: 20040101, end: 20060101
  2. EFFEXOR XR [Suspect]
     Dosage: 112.5 MG 1X PER 1 DAY, 75MG 1X PER 1 DAY; ORAL; 37.5MG 1X PER 1 DAY; ORAL
     Route: 048
     Dates: start: 20060201, end: 20060101
  3. EFFEXOR XR [Suspect]
     Dosage: 112.5 MG 1X PER 1 DAY, 75MG 1X PER 1 DAY; ORAL; 37.5MG 1X PER 1 DAY; ORAL
     Route: 048
     Dates: start: 20060101, end: 20060201
  4. EFFEXOR XR [Suspect]
     Dosage: 112.5 MG 1X PER 1 DAY, 75MG 1X PER 1 DAY; ORAL; 37.5MG 1X PER 1 DAY; ORAL
     Route: 048
     Dates: start: 20060101, end: 20060314

REACTIONS (14)
  - AFFECT LABILITY [None]
  - CHEST DISCOMFORT [None]
  - DIARRHOEA [None]
  - DIZZINESS [None]
  - DRUG WITHDRAWAL SYNDROME [None]
  - DYSPNOEA [None]
  - FATIGUE [None]
  - HEADACHE [None]
  - HEART RATE INCREASED [None]
  - MENTAL IMPAIRMENT [None]
  - NAUSEA [None]
  - PARAESTHESIA [None]
  - SPEECH DISORDER [None]
  - VISUAL DISTURBANCE [None]
